FAERS Safety Report 25797986 (Version 1)
Quarter: 2025Q3

REPORT INFORMATION
  Report Type: Spontaneous
  Country: EU (occurrence: EU)
  Receive Date: 20250912
  Receipt Date: 20250912
  Transmission Date: 20251020
  Serious: Yes (Hospitalization)
  Sender: ASTELLAS
  Company Number: EU-ASTELLAS-2025-AER-050214

PATIENT
  Age: 62 Year
  Sex: Male

DRUGS (1)
  1. GILTERITINIB [Suspect]
     Active Substance: GILTERITINIB
     Indication: Acute myeloid leukaemia
     Route: 048

REACTIONS (2)
  - COVID-19 pneumonia [Unknown]
  - Respiratory failure [Unknown]
